FAERS Safety Report 7872789-0 (Version None)
Quarter: 2011Q4

REPORT INFORMATION
  Report Type: 
  Country: None (occurrence: None)
  Receive Date: 20111030
  Receipt Date: 20110425
  Transmission Date: 20120403
  Serious: No
  Sender: FDA-Public Use
  Company Number: US-AMGEN-USASP2011013643

PATIENT
  Age: 49 Year
  Sex: Female

DRUGS (3)
  1. PLAQUENIL [Concomitant]
     Dosage: 2 MG, QD
     Dates: start: 20100501
  2. ENBREL [Suspect]
     Indication: PSORIATIC ARTHROPATHY
     Dosage: 50 MG, QWK
     Dates: start: 20110201
  3. METHOTREXATE [Concomitant]
     Dosage: 1 MG, QWK
     Dates: start: 20110127

REACTIONS (10)
  - HEADACHE [None]
  - DIZZINESS [None]
  - INJECTION SITE MASS [None]
  - RASH ERYTHEMATOUS [None]
  - FATIGUE [None]
  - NAUSEA [None]
  - PSORIATIC ARTHROPATHY [None]
  - ASTHENIA [None]
  - INJECTION SITE REACTION [None]
  - INJECTION SITE ERYTHEMA [None]
